FAERS Safety Report 6919011-7 (Version None)
Quarter: 2010Q3

REPORT INFORMATION
  Report Type: 
  Country: None (occurrence: None)
  Receive Date: 20100811
  Receipt Date: 20100728
  Transmission Date: 20110219
  Serious: Yes (Other)
  Sender: FDA-Public Use
  Company Number: US-ELI_LILLY_AND_COMPANY-US201007007589

PATIENT
  Age: 9 Year
  Sex: Male

DRUGS (2)
  1. STRATTERA [Suspect]
  2. SINGULAIR [Concomitant]
     Indication: ASTHMA

REACTIONS (2)
  - SELF INJURIOUS BEHAVIOUR [None]
  - SUICIDAL BEHAVIOUR [None]
